FAERS Safety Report 10101545 (Version 3)
Quarter: 2014Q2

REPORT INFORMATION
  Report Type: Spontaneous
  Country: US (occurrence: US)
  Receive Date: 20140424
  Receipt Date: 20140603
  Transmission Date: 20141212
  Serious: Yes (Disabling, Other)
  Sender: FDA-Public Use
  Company Number: US-009507513-1105USA00696

PATIENT
  Sex: Male
  Weight: 78.93 kg

DRUGS (3)
  1. PROSCAR [Suspect]
     Indication: ALOPECIA
     Dosage: 1/4 TABLET
     Route: 048
     Dates: start: 1998, end: 20070221
  2. PROSCAR [Suspect]
     Indication: ALOPECIA AREATA
  3. PROPECIA [Suspect]
     Indication: ALOPECIA
     Dosage: 1 MG, QD
     Route: 048
     Dates: start: 1998, end: 2007

REACTIONS (49)
  - Anxiety [Not Recovered/Not Resolved]
  - Sensory loss [Not Recovered/Not Resolved]
  - Tonsillar disorder [Unknown]
  - Ligament rupture [Unknown]
  - Sexual dysfunction [Unknown]
  - Libido decreased [Recovered/Resolved]
  - Erectile dysfunction [Recovering/Resolving]
  - Semen volume decreased [Unknown]
  - Testicular pain [Unknown]
  - Depression [Unknown]
  - Adrenal insufficiency [Unknown]
  - Allergy to arthropod sting [Unknown]
  - Hypertension [Unknown]
  - Rhinitis allergic [Unknown]
  - Upper respiratory tract infection [Unknown]
  - Bronchitis [Unknown]
  - Prostatitis [Unknown]
  - Stress [Unknown]
  - Wrong technique in drug usage process [Unknown]
  - Hypersensitivity [Unknown]
  - Intentional product misuse [Unknown]
  - Growth hormone-producing pituitary tumour [Unknown]
  - Helicobacter test [Unknown]
  - Abdominal pain [Unknown]
  - Nausea [Unknown]
  - Decreased appetite [Unknown]
  - Seasonal allergy [Unknown]
  - Hypogonadism male [Not Recovered/Not Resolved]
  - Asthenia [Recovered/Resolved]
  - Poor quality sleep [Recovered/Resolved]
  - Sinus disorder [Unknown]
  - Cardiac murmur [Unknown]
  - Palpitations [Unknown]
  - Tachycardia [Unknown]
  - Arrhythmia supraventricular [Recovering/Resolving]
  - Nerve compression [Unknown]
  - Neuritis [Unknown]
  - Osteoarthritis [Unknown]
  - Insomnia [Recovered/Resolved]
  - Sinusitis [Unknown]
  - Blood pressure increased [Unknown]
  - Pharyngitis [Unknown]
  - Neck pain [Unknown]
  - Spinal osteoarthritis [Unknown]
  - Vertebral foraminal stenosis [Unknown]
  - Fatigue [Unknown]
  - Cognitive disorder [Unknown]
  - Suicidal ideation [Unknown]
  - Ejaculation disorder [Unknown]
